FAERS Safety Report 8114435-7 (Version None)
Quarter: 2012Q1

REPORT INFORMATION
  Report Type: 
  Country: None (occurrence: None)
  Receive Date: 20120206
  Receipt Date: 20120127
  Transmission Date: 20120608
  Serious: No
  Sender: FDA-Public Use
  Company Number: US-BIOGENIDEC-2012BI003726

PATIENT
  Sex: Male

DRUGS (1)
  1. TYSABRI [Suspect]
     Indication: MULTIPLE SCLEROSIS
     Route: 042
     Dates: start: 20110708

REACTIONS (6)
  - HEMIPARESIS [None]
  - VISUAL IMPAIRMENT [None]
  - FEELING COLD [None]
  - CONFUSIONAL STATE [None]
  - PAIN [None]
  - FLUSHING [None]
